FAERS Safety Report 6449503-9 (Version None)
Quarter: 2009Q4

REPORT INFORMATION
  Report Type: 
  Country: None (occurrence: None)
  Receive Date: 20091120
  Receipt Date: 20091106
  Transmission Date: 20100525
  Serious: Yes (Disabling)
  Sender: FDA-Public Use
  Company Number: IT-ELI_LILLY_AND_COMPANY-IT200911000389

PATIENT
  Age: 66 Year
  Sex: Male

DRUGS (3)
  1. ZYPREXA [Suspect]
     Indication: PSYCHOTIC DISORDER
     Dosage: 10 MG, UNKNOWN
     Route: 048
     Dates: start: 20021004, end: 20050108
  2. TEGRETOL [Concomitant]
     Indication: PSYCHOTIC DISORDER
     Dosage: 400 MG, 2/D
     Route: 048
     Dates: start: 20020108, end: 20020108
  3. DIAZEPAM [Concomitant]
     Indication: PSYCHOTIC DISORDER
     Dosage: 10 D/F, DAILY (1/D)
     Route: 048
     Dates: start: 20050108

REACTIONS (2)
  - PERIODONTITIS [None]
  - TOOTH LOSS [None]
